FAERS Safety Report 21745997 (Version 2)
Quarter: 2023Q1

REPORT INFORMATION
  Report Type: Spontaneous
  Country: CA (occurrence: CA)
  Receive Date: 20221219
  Receipt Date: 20230315
  Transmission Date: 20230417
  Serious: Yes (Other)
  Sender: FDA-Public Use
  Company Number: CA-ADVANZ PHARMA-202212008768

PATIENT
  Age: 67 Year
  Sex: Female

DRUGS (3)
  1. OCALIVA [Suspect]
     Active Substance: OBETICHOLIC ACID
     Indication: Primary biliary cholangitis
     Dosage: 5 MG, QD (OCALIVA)
     Route: 048
     Dates: start: 20220611
  2. OCALIVA [Suspect]
     Active Substance: OBETICHOLIC ACID
     Dosage: 5 MG, WEEKLY
     Route: 048
     Dates: end: 202212
  3. URSODIOL [Concomitant]
     Active Substance: URSODIOL
     Dosage: 750 MG, BID (1500 MG DAILY)

REACTIONS (4)
  - Disease progression [Unknown]
  - Liver disorder [Unknown]
  - Decreased appetite [Unknown]
  - Peripheral swelling [Unknown]
